FAERS Safety Report 5682188-8 (Version None)
Quarter: 2008Q1

REPORT INFORMATION
  Report Type: 
  Country: None (occurrence: None)
  Receive Date: 20080325
  Receipt Date: 20080312
  Transmission Date: 20080703
  Serious: Yes (Life-Threatening)
  Sender: FDA-Public Use
  Company Number: DSA_31622_2008

PATIENT
  Age: 71 Year
  Sex: Male

DRUGS (1)
  1. DILTIAZEM HYDROCHLORIDE [Suspect]
     Indication: HYPERTENSION
     Dosage: 240 MG QD ORAL
     Route: 048
     Dates: start: 20060405, end: 20071016

REACTIONS (2)
  - ATRIOVENTRICULAR BLOCK [None]
  - SINUS ARREST [None]
